FAERS Safety Report 8013090-4 (Version None)
Quarter: 2011Q4

REPORT INFORMATION
  Report Type: 
  Country: None (occurrence: None)
  Receive Date: 20111229
  Receipt Date: 20111220
  Transmission Date: 20120403
  Serious: Yes (Hospitalization, Other)
  Sender: FDA-Public Use
  Company Number: US-BAYER-2011-060342

PATIENT
  Age: 33 Year
  Sex: Female

DRUGS (1)
  1. YASMIN [Suspect]
     Indication: CONTRACEPTION
     Route: 048

REACTIONS (5)
  - MYOCARDIAL INFARCTION [None]
  - DYSPNOEA [None]
  - EMOTIONAL DISTRESS [None]
  - PNEUMONIA [None]
  - PAIN [None]
